FAERS Safety Report 7362052-9 (Version None)
Quarter: 2011Q1

REPORT INFORMATION
  Report Type: 
  Country: None (occurrence: None)
  Receive Date: 20110318
  Receipt Date: 20110221
  Transmission Date: 20110831
  Serious: No
  Sender: FDA-Public Use
  Company Number: US-B.I. PHARMACEUTICALS,INC./RIDGEFIELD-2011-BP-00354BP

PATIENT
  Sex: Male

DRUGS (8)
  1. PRADAXA [Suspect]
     Indication: ATRIAL FIBRILLATION
     Dosage: 300 MG
     Route: 048
     Dates: start: 20101201
  2. SYNTHROID [Concomitant]
     Indication: HYPOTHYROIDISM
     Dosage: 112 MCG
     Route: 048
  3. ANDRODERM [Concomitant]
     Route: 061
  4. SIMVASTATIN [Concomitant]
     Indication: BLOOD CHOLESTEROL INCREASED
     Dosage: 40 MG
     Route: 048
  5. OVAC GREEN HERBAL [Concomitant]
  6. BYSTOLIC [Concomitant]
  7. FLAX SEED [Concomitant]
  8. SPIRALINA [Concomitant]

REACTIONS (11)
  - DEREALISATION [None]
  - COORDINATION ABNORMAL [None]
  - GAIT DISTURBANCE [None]
  - ABDOMINAL PAIN [None]
  - BACK PAIN [None]
  - DIZZINESS [None]
  - DYSPNOEA [None]
  - DIARRHOEA [None]
  - DYSPEPSIA [None]
  - NAUSEA [None]
  - HAEMATOCHEZIA [None]
